FAERS Safety Report 9913319 (Version 5)
Quarter: 2014Q2

REPORT INFORMATION
  Report Type: Spontaneous
  Country: US (occurrence: None)
  Receive Date: 20140214
  Receipt Date: 20140618
  Transmission Date: 20141212
  Serious: Yes (Hospitalization, Other)
  Sender: FDA-Public Use
  Company Number: ADR-2014-00225

PATIENT
  Age: 51 Year
  Sex: Female

DRUGS (2)
  1. BACLOFEN [Suspect]
     Indication: MUSCLE SPASTICITY
     Dosage: SEE B5
  2. DILAUDID [Suspect]
     Dosage: SEE B5

REACTIONS (16)
  - Muscle spasticity [None]
  - Muscle spasms [None]
  - Pyrexia [None]
  - Blood pressure fluctuation [None]
  - Brain injury [None]
  - Mental status changes [None]
  - Hypertension [None]
  - Hypotension [None]
  - Blood creatine phosphokinase increased [None]
  - Drug withdrawal syndrome [None]
  - Decubitus ulcer [None]
  - Infection [None]
  - Pain [None]
  - Unresponsive to stimuli [None]
  - Drug prescribing error [None]
  - Device computer issue [None]
